FAERS Safety Report 7814302-X (Version None)
Quarter: 2011Q4

REPORT INFORMATION
  Report Type: 
  Country: None (occurrence: None)
  Receive Date: 20111014
  Receipt Date: 20111005
  Transmission Date: 20120403
  Serious: Yes (Other)
  Sender: FDA-Public Use
  Company Number: BR-BAYER-2011-095389

PATIENT
  Age: 32 Year
  Sex: Female
  Weight: 50 kg

DRUGS (4)
  1. ESTRADIOL VALERATE/DIENOGEST [Suspect]
     Indication: OVARIAN CYST
  2. ESTRADIOL VALERATE/DIENOGEST [Suspect]
     Indication: CONTRACEPTION
     Dosage: 1 DF, QD
     Route: 048
     Dates: start: 20110701
  3. CETIRIZINE HCL [Concomitant]
     Indication: URTICARIA
     Dosage: 1 DF, QD
     Route: 048
     Dates: start: 20110915
  4. OMEPRAZOLE [Concomitant]
     Indication: ABDOMINAL DISCOMFORT
     Dosage: 1 DF, QD
     Route: 048
     Dates: start: 20110915

REACTIONS (3)
  - METRORRHAGIA [None]
  - AMENORRHOEA [None]
  - VAGINAL HAEMORRHAGE [None]
